APPROVED DRUG PRODUCT: PHENOXYBENZAMINE HYDROCHLORIDE
Active Ingredient: PHENOXYBENZAMINE HYDROCHLORIDE
Strength: 10MG
Dosage Form/Route: CAPSULE;ORAL
Application: A204551 | Product #001 | TE Code: AB
Applicant: RISING PHARMA HOLDINGS INC
Approved: Jun 20, 2023 | RLD: No | RS: No | Type: RX